FAERS Safety Report 21312415 (Version 1)
Quarter: 2022Q3

REPORT INFORMATION
  Report Type: Spontaneous
  Country: US (occurrence: None)
  Receive Date: 20220909
  Receipt Date: 20220909
  Transmission Date: 20221027
  Serious: No
  Sender: FDA-Public Use
  Company Number: US-ARIS GLOBAL-202206-1053

PATIENT
  Age: 53 Year
  Sex: Female

DRUGS (8)
  1. OXERVATE [Suspect]
     Active Substance: CENEGERMIN-BKBJ
     Indication: Neurotrophic keratopathy
     Route: 047
     Dates: start: 20220602, end: 202206
  2. HUMAN PLASMA [Concomitant]
     Active Substance: HUMAN PLASMA
  3. MOXIFLOXACIN [Concomitant]
     Active Substance: MOXIFLOXACIN
  4. COSOPT [Concomitant]
     Active Substance: DORZOLAMIDE HYDROCHLORIDE\TIMOLOL MALEATE
     Dosage: 22.3-6.8/1
  5. TRAVATAN Z [Concomitant]
     Active Substance: TRAVOPROST
  6. LOTEMAX [Concomitant]
     Active Substance: LOTEPREDNOL ETABONATE
     Dosage: DROPS GEL
  7. METHAZOLAMIDE [Concomitant]
     Active Substance: METHAZOLAMIDE
  8. SERUM TEARS [Concomitant]

REACTIONS (5)
  - Product dose omission issue [Unknown]
  - Asthenopia [Unknown]
  - Dry eye [Unknown]
  - Eye irritation [Unknown]
  - Vision blurred [Unknown]

NARRATIVE: CASE EVENT DATE: 20220604
